FAERS Safety Report 5022169-0 (Version None)
Quarter: 2006Q2

REPORT INFORMATION
  Report Type: 
  Country: None (occurrence: None)
  Receive Date: 20060609
  Receipt Date: 20060607
  Transmission Date: 20061013
  Serious: Yes (Hospitalization)
  Sender: FDA-Public Use
  Company Number: 2006CG01010

PATIENT
  Age: 80 Year
  Sex: Male

DRUGS (7)
  1. HYTACAND [Suspect]
     Route: 048
     Dates: start: 20060301, end: 20060301
  2. HYTACAND [Suspect]
     Route: 048
     Dates: start: 20060319, end: 20060320
  3. TENORMIN [Concomitant]
     Route: 048
  4. MONICOR LP [Concomitant]
     Route: 048
  5. ASPIRIN [Concomitant]
     Route: 048
  6. AMLOR [Concomitant]
     Route: 048
  7. SIMVASTATIN [Concomitant]
     Route: 048

REACTIONS (7)
  - DIZZINESS [None]
  - DYSPHONIA [None]
  - HICCUPS [None]
  - NAUSEA [None]
  - PHARYNGITIS [None]
  - PHARYNGOLARYNGEAL PAIN [None]
  - TONSILLAR HYPERTROPHY [None]
